FAERS Safety Report 5251845-X (Version None)
Quarter: 2007Q1

REPORT INFORMATION
  Report Type: 
  Country: None (occurrence: None)
  Receive Date: 20070223
  Receipt Date: 20070214
  Transmission Date: 20070707
  Serious: Yes (Other)
  Sender: FDA-Public Use
  Company Number: 2007SP001489

PATIENT
  Age: 30 Year
  Sex: Male
  Weight: 97.5234 kg

DRUGS (2)
  1. PEG-INTRON [Suspect]
     Indication: HEPATITIS C
     Dosage: 150 MCG;QW;SC
     Route: 058
     Dates: start: 20061222
  2. RIBAVIRIN [Suspect]
     Indication: HEPATITIS C
     Dosage: 600 MG;BID;PO
     Route: 048
     Dates: start: 20061222

REACTIONS (10)
  - ANOREXIA [None]
  - CHILLS [None]
  - DEHYDRATION [None]
  - DEPRESSION [None]
  - DRY MOUTH [None]
  - INFLUENZA LIKE ILLNESS [None]
  - PAIN [None]
  - PYREXIA [None]
  - VOMITING [None]
  - WEIGHT DECREASED [None]
